FAERS Safety Report 6000056-9 (Version None)
Quarter: 2008Q4

REPORT INFORMATION
  Report Type: 
  Country: None (occurrence: None)
  Receive Date: 20081215
  Receipt Date: 20081209
  Transmission Date: 20090506
  Serious: Yes (Hospitalization)
  Sender: FDA-Public Use
  Company Number: B0543795A

PATIENT
  Age: 74 Year
  Sex: Female
  Weight: 38 kg

DRUGS (7)
  1. VALTREX [Suspect]
     Indication: HERPES ZOSTER
     Dosage: 1000MG THREE TIMES PER DAY
     Route: 048
     Dates: start: 20081020, end: 20081021
  2. VALTREX [Suspect]
     Dosage: 1000MG TWICE PER DAY
     Route: 048
     Dates: start: 20081022, end: 20081023
  3. FLOMOX [Concomitant]
     Indication: INFECTION
     Dosage: 300MG PER DAY
     Route: 048
     Dates: start: 20081020, end: 20081023
  4. CALONAL [Concomitant]
     Indication: ANALGESIA
     Dosage: 600MG PER DAY
     Route: 048
     Dates: start: 20081020, end: 20081023
  5. SELBEX [Concomitant]
     Indication: GASTRITIS
     Dosage: 150MG PER DAY
     Route: 048
     Dates: start: 20081020, end: 20081023
  6. NORVASC [Concomitant]
     Indication: DRUG USE FOR UNKNOWN INDICATION
     Route: 048
  7. ARASENA-A [Concomitant]
     Indication: DRUG USE FOR UNKNOWN INDICATION
     Route: 061

REACTIONS (4)
  - ASTHENIA [None]
  - DIZZINESS [None]
  - HEADACHE [None]
  - NAUSEA [None]
